FAERS Safety Report 12263368 (Version 3)
Quarter: 2016Q2

REPORT INFORMATION
  Report Type: Spontaneous
  Country: FR (occurrence: FR)
  Receive Date: 20160413
  Receipt Date: 20160630
  Transmission Date: 20160815
  Serious: Yes (Hospitalization)
  Sender: FDA-Public Use
  Company Number: FR-PFIZER INC-2016198646

PATIENT
  Age: 48 Year
  Sex: Female

DRUGS (7)
  1. PACLITAXEL SANDOZ [Suspect]
     Active Substance: PACLITAXEL
     Indication: NEOPLASM MALIGNANT
     Dosage: 175 MG/M2 DAILY ON DAY 1, CYCLIC
     Route: 042
     Dates: start: 20160219, end: 20160314
  2. GEMZAR [Suspect]
     Active Substance: GEMCITABINE HYDROCHLORIDE
     Indication: NEOPLASM MALIGNANT
     Dosage: 1250 MG/M2 DAILY (ON DAY 1 AND 8), CYCLIC
     Route: 042
     Dates: start: 20160219, end: 20160314
  3. SOLU-MEDROL [Suspect]
     Active Substance: METHYLPREDNISOLONE SODIUM SUCCINATE
     Indication: NEOPLASM MALIGNANT
     Dosage: 120 MG (C1D1)
     Route: 042
     Dates: start: 20160219, end: 20160219
  4. SOLU-MEDROL [Suspect]
     Active Substance: METHYLPREDNISOLONE SODIUM SUCCINATE
     Dosage: 120 MG (C2D1)
     Route: 042
     Dates: start: 20160314, end: 20160314
  5. POLARAMINE [Suspect]
     Active Substance: DEXCHLORPHENIRAMINE MALEATE
     Indication: NEOPLASM MALIGNANT
     Dosage: 5 MG ON C1D1, C2D1
     Route: 042
     Dates: start: 20160219, end: 20160314
  6. AZANTAC [Suspect]
     Active Substance: RANITIDINE HYDROCHLORIDE
     Indication: NEOPLASM MALIGNANT
     Dosage: 50 MG ON C1D1, C2D1
     Route: 042
     Dates: start: 20160219, end: 20160314
  7. SOLU-MEDROL [Suspect]
     Active Substance: METHYLPREDNISOLONE SODIUM SUCCINATE
     Dosage: 60 MG (C1D8)
     Route: 042
     Dates: start: 20160229, end: 20160229

REACTIONS (1)
  - Hepatic enzyme increased [Recovering/Resolving]

NARRATIVE: CASE EVENT DATE: 20160225
